FAERS Safety Report 9486177 (Version 1)
Quarter: 2013Q3

REPORT INFORMATION
  Report Type: Spontaneous
  Country: US (occurrence: None)
  Receive Date: 20130827
  Receipt Date: 20130827
  Transmission Date: 20140515
  Serious: Yes (Other)
  Sender: FDA-Public Use
  Company Number: None

PATIENT
  Age: 59 Year
  Sex: Female
  Weight: 70.31 kg

DRUGS (1)
  1. PROPRANOLOL ER 60 MG [Suspect]
     Indication: TREMOR
     Dosage: ONE CAPSULE
     Route: 048
     Dates: start: 20130511, end: 20130810

REACTIONS (4)
  - Dyspnoea [None]
  - Abnormal dreams [None]
  - Nightmare [None]
  - Screaming [None]
